FAERS Safety Report 13211176 (Version 3)
Quarter: 2017Q2

REPORT INFORMATION
  Report Type: Spontaneous
  Country: US (occurrence: US)
  Receive Date: 20170210
  Receipt Date: 20170410
  Transmission Date: 20170830
  Serious: No
  Sender: FDA-Public Use
  Company Number: US-PFIZER INC-2017054745

PATIENT
  Age: 55 Year
  Sex: Female
  Weight: 53.97 kg

DRUGS (20)
  1. PRAVASTATIN. [Concomitant]
     Active Substance: PRAVASTATIN
     Dosage: 20 MG, 1X/DAY
     Route: 048
  2. RELPAX [Concomitant]
     Active Substance: ELETRIPTAN HYDROBROMIDE
     Indication: MIGRAINE
     Dosage: 10 MG, AS NEEDED (1 TABS PO, Q DAY, PRN)
     Route: 048
  3. FOLIC ACID. [Concomitant]
     Active Substance: FOLIC ACID
     Dosage: 1 MG, DAILY
     Route: 048
  4. ZOLPIDEM [Concomitant]
     Active Substance: ZOLPIDEM\ZOLPIDEM TARTRATE
     Dosage: 5 MG, AS NEEDED (1XDAILY HS, PRN)
     Route: 048
  5. BUTALBITAL APAP CAFFEINE [Concomitant]
     Indication: HEADACHE
     Dosage: 1 DF, AS NEEDED (1 CAPS) (Q4HR) [BUTALBITAL 50MG CAFFEINE 40MG, PARACETAMOL 300MG]
     Route: 048
  6. TIZANIDINE. [Concomitant]
     Active Substance: TIZANIDINE
     Indication: MUSCLE SPASMS
     Dosage: UNK UNK, AS NEEDED (TAKE ONE TABLET BY MOUTH TWICE A DAY AS NEEDED )
     Route: 048
  7. VITAMIN B12 [Concomitant]
     Active Substance: CYANOCOBALAMIN
     Dosage: 100 UG, 1X/DAY
     Route: 048
  8. TDAP IMMUN [Concomitant]
     Dosage: 0.5 ML, UNK
     Route: 030
     Dates: start: 20170209, end: 20170209
  9. AMITRIPTYLINE [Concomitant]
     Active Substance: AMITRIPTYLINE
     Dosage: 50 MG, DAILY (AT BEDTIME)
     Route: 048
  10. FISH OIL [Concomitant]
     Active Substance: FISH OIL
     Dosage: UNK
  11. VITAMIN C [Concomitant]
     Active Substance: ASCORBIC ACID
     Dosage: 1000 MG, 1X/DAY
     Route: 048
  12. LYRICA [Suspect]
     Active Substance: PREGABALIN
     Dosage: UNK
  13. FLUTICASONE. [Concomitant]
     Active Substance: FLUTICASONE
     Dosage: 2X/DAY (2 SPRAYS NASAL 2XDAILY )
     Route: 045
  14. MAGNESIUM OXIDE. [Concomitant]
     Active Substance: MAGNESIUM OXIDE
     Dosage: 400 MG, DAILY
     Route: 048
  15. PHENERGAN [Concomitant]
     Active Substance: PROMETHAZINE HYDROCHLORIDE
     Dosage: 25 MG, AS NEEDED
     Route: 048
  16. LYRICA [Suspect]
     Active Substance: PREGABALIN
     Dosage: 50 MG, 2X/DAY
     Route: 048
     Dates: start: 20170209
  17. CLONAZEPAM. [Concomitant]
     Active Substance: CLONAZEPAM
     Dosage: 0.25 MG, 2X/DAY
     Route: 048
  18. CITALOPRAM [Concomitant]
     Active Substance: CITALOPRAM HYDROBROMIDE
     Dosage: 40 MG, 1X/DAY (2 TABS)
     Route: 048
  19. CENTRUM WOMEN 50+ [Concomitant]
     Dosage: 1 DF, 1X/DAY
     Route: 048
  20. CALCIUM CARBONATE. [Concomitant]
     Active Substance: CALCIUM CARBONATE
     Dosage: 600 MG, DAILY
     Route: 048

REACTIONS (2)
  - Pain [Unknown]
  - Insomnia [Unknown]
